FAERS Safety Report 8611046-1 (Version None)
Quarter: 2012Q3

REPORT INFORMATION
  Report Type: 
  Country: None (occurrence: None)
  Receive Date: 20120822
  Receipt Date: 20120816
  Transmission Date: 20120928
  Serious: Yes (Death, Hospitalization)
  Sender: FDA-Public Use
  Company Number: SG-PFIZER INC-2012200275

PATIENT
  Sex: Female

DRUGS (4)
  1. GLIPIZIDE [Concomitant]
     Dosage: 10 MG, 2X/DAY
     Route: 048
  2. PHENYTOIN [Suspect]
     Dosage: UNK
     Dates: end: 20101012
  3. METFORMIN [Concomitant]
     Dosage: 850 MG, 2X/DAY
     Route: 048
  4. SIMVASTATIN [Concomitant]
     Indication: HYPERLIPIDAEMIA
     Dosage: 40 MG, 1X/DAY
     Route: 048

REACTIONS (3)
  - RASH MACULO-PAPULAR [None]
  - HYPOTENSION [None]
  - DRUG ERUPTION [None]
